FAERS Safety Report 14134177 (Version 12)
Quarter: 2019Q2

REPORT INFORMATION
  Report Type: Report from Study
  Country: US (occurrence: US)
  Receive Date: 20171026
  Receipt Date: 20190612
  Transmission Date: 20190711
  Serious: Yes (Hospitalization, Other)
  Sender: FDA-Public Use
  Company Number: US-TESARO, INC-US-2017TSO01827

PATIENT
  Age: 53 Year
  Sex: Female
  Weight: 68.89 kg

DRUGS (9)
  1. ZEJULA [Suspect]
     Active Substance: NIRAPARIB
     Dosage: 200 MG, QD
     Route: 048
     Dates: start: 20170831
  2. ZEJULA [Suspect]
     Active Substance: NIRAPARIB
     Dosage: 100 MG, DAILY
     Route: 048
  3. ZEJULA [Suspect]
     Active Substance: NIRAPARIB
     Dosage: 100 MG, DAILY
     Route: 048
  4. ZEJULA [Suspect]
     Active Substance: NIRAPARIB
     Dosage: 100 MG, UNK
     Route: 048
  5. ZEJULA [Suspect]
     Active Substance: NIRAPARIB
     Dosage: 100 MG, QD
     Route: 048
  6. ZEJULA [Suspect]
     Active Substance: NIRAPARIB
     Dosage: 100 MG, UNK
     Route: 048
  7. ZEJULA [Suspect]
     Active Substance: NIRAPARIB
     Indication: OVARIAN CANCER
     Dosage: 300 MG, QD
     Route: 048
     Dates: start: 20170626
  8. ZEJULA [Suspect]
     Active Substance: NIRAPARIB
     Dosage: 100 MG, QD
     Route: 048
     Dates: start: 20170626
  9. ZEJULA [Suspect]
     Active Substance: NIRAPARIB
     Dosage: 100 MG, QD
     Route: 048

REACTIONS (47)
  - Petechiae [Recovering/Resolving]
  - Sneezing [Unknown]
  - Photosensitivity reaction [Recovered/Resolved]
  - Visual impairment [Unknown]
  - Parosmia [Not Recovered/Not Resolved]
  - Vomiting [Recovered/Resolved]
  - Gastric neoplasm [Recovered/Resolved]
  - Dehydration [Unknown]
  - Ear infection [Not Recovered/Not Resolved]
  - Fear of disease [Unknown]
  - Influenza [Recovering/Resolving]
  - Gastroenteritis viral [Unknown]
  - Carbohydrate antigen 125 increased [Unknown]
  - Decreased appetite [Not Recovered/Not Resolved]
  - Hospitalisation [Unknown]
  - Dehydration [Recovered/Resolved]
  - Arthritis [Unknown]
  - White blood cell count decreased [Unknown]
  - Cough [Recovered/Resolved]
  - Abdominal pain upper [Unknown]
  - Weight decreased [Unknown]
  - Malaise [Recovering/Resolving]
  - Hiatus hernia [Unknown]
  - Alopecia [Not Recovered/Not Resolved]
  - Fatigue [Not Recovered/Not Resolved]
  - Nausea [Not Recovered/Not Resolved]
  - Diarrhoea [Not Recovered/Not Resolved]
  - Benign neoplasm [Unknown]
  - Laboratory test abnormal [Unknown]
  - Urinary tract infection [Recovered/Resolved]
  - Hypertension [Unknown]
  - Sinusitis [Not Recovered/Not Resolved]
  - Impaired work ability [Unknown]
  - Thyroid disorder [Not Recovered/Not Resolved]
  - Pyrexia [Recovered/Resolved]
  - Influenza [Recovered/Resolved]
  - Musculoskeletal stiffness [Unknown]
  - Nervousness [Unknown]
  - Dizziness [Not Recovered/Not Resolved]
  - Platelet count decreased [Recovered/Resolved]
  - Abdominal discomfort [Unknown]
  - Gastrointestinal scarring [Not Recovered/Not Resolved]
  - Upper-airway cough syndrome [Recovered/Resolved]
  - Hypersensitivity [Not Recovered/Not Resolved]
  - Asthenia [Not Recovered/Not Resolved]
  - Constipation [Not Recovered/Not Resolved]
  - Vomiting [Unknown]

NARRATIVE: CASE EVENT DATE: 20170716
